FAERS Safety Report 25764285 (Version 1)
Quarter: 2025Q3

REPORT INFORMATION
  Report Type: Spontaneous
  Country: US (occurrence: US)
  Receive Date: 20250905
  Receipt Date: 20250905
  Transmission Date: 20251020
  Serious: No
  Sender: DOMPE FARMACEUTICI
  Company Number: US-FARMAPROD-202412-4333

PATIENT
  Age: 68 Year
  Sex: Female

DRUGS (9)
  1. OXERVATE [Suspect]
     Active Substance: CENEGERMIN-BKBJ
     Indication: Neurotrophic keratopathy
     Route: 047
     Dates: start: 20241222
  2. TYRVAYA [Concomitant]
     Active Substance: VARENICLINE TARTRATE
  3. RESTASIS [Concomitant]
     Active Substance: CYCLOSPORINE
  4. XIIDRA [Concomitant]
     Active Substance: LIFITEGRAST
  5. ATENOLOL [Concomitant]
     Active Substance: ATENOLOL
  6. AMLODIPINE BESYLATE [Concomitant]
     Active Substance: AMLODIPINE BESYLATE
  7. ARTIFICIAL TEARS [Concomitant]
  8. ESTRADIOL [Concomitant]
     Active Substance: ESTRADIOL
  9. ACETAMINOPHEN\HYDROCODONE [Concomitant]
     Active Substance: ACETAMINOPHEN\HYDROCODONE

REACTIONS (3)
  - Pain [Unknown]
  - Eye pain [Unknown]
  - Neuralgia [Unknown]

NARRATIVE: CASE EVENT DATE: 20241224
